FAERS Safety Report 22289043 (Version 1)
Quarter: 2023Q2

REPORT INFORMATION
  Report Type: Spontaneous
  Country: AF (occurrence: AF)
  Receive Date: 20230505
  Receipt Date: 20230505
  Transmission Date: 20230722
  Serious: Yes (Hospitalization)
  Sender: FDA-Public Use
  Company Number: AF-JNJFOC-20230463118

PATIENT
  Age: 70 Year
  Sex: Female
  Weight: 47 kg

DRUGS (6)
  1. BEDAQUILINE [Suspect]
     Active Substance: BEDAQUILINE
     Indication: Tuberculosis
     Route: 048
     Dates: start: 20221216
  2. LINEZOLID [Suspect]
     Active Substance: LINEZOLID
     Indication: Tuberculosis
     Route: 048
     Dates: start: 20221216, end: 20230418
  3. LEVOFLOXACIN [Suspect]
     Active Substance: LEVOFLOXACIN
     Route: 048
     Dates: start: 20221216
  4. CLOFAZIMINE [Suspect]
     Active Substance: CLOFAZIMINE
     Route: 048
     Dates: start: 20221216
  5. PYRAZINAMIDE [Suspect]
     Active Substance: PYRAZINAMIDE
     Route: 048
     Dates: start: 20221216, end: 20230106
  6. GABAPENTIN [Concomitant]
     Active Substance: GABAPENTIN

REACTIONS (2)
  - Anaemia [Recovering/Resolving]
  - Adverse event [Recovering/Resolving]

NARRATIVE: CASE EVENT DATE: 20230417
